FAERS Safety Report 5449215-4 (Version None)
Quarter: 2007Q3

REPORT INFORMATION
  Report Type: 
  Country: None (occurrence: None)
  Receive Date: 20070911
  Receipt Date: 20070905
  Transmission Date: 20080115
  Serious: Yes (Hospitalization)
  Sender: FDA-Public Use
  Company Number: DE-BOEHRINGER INGELHEIM PHARMACEUTICALS, INC.-2002-BP-00742BP

PATIENT
  Sex: Male

DRUGS (9)
  1. TELMISARTAN TABLETS [Suspect]
     Indication: CARDIOVASCULAR DISORDER
     Route: 048
     Dates: start: 20020101, end: 20020206
  2. TELMISARTAN TABLETS [Suspect]
     Indication: CEREBROVASCULAR ACCIDENT PROPHYLAXIS
  3. RAMIPRIL [Suspect]
     Indication: CARDIOVASCULAR DISORDER
     Route: 048
     Dates: start: 20020101, end: 20020206
  4. RAMIPRIL [Suspect]
     Indication: CEREBROVASCULAR ACCIDENT PROPHYLAXIS
  5. ASPIRIN [Concomitant]
  6. METOPROLOL SUCCINATE [Concomitant]
  7. FLUVASTATIN [Concomitant]
  8. FENOFIBRATE [Concomitant]
  9. ACIPIMOX [Concomitant]

REACTIONS (1)
  - SYNCOPE [None]
